FAERS Safety Report 26092989 (Version 1)
Quarter: 2025Q4

REPORT INFORMATION
  Report Type: Spontaneous
  Country: US (occurrence: US)
  Receive Date: 20251126
  Receipt Date: 20251126
  Transmission Date: 20260117
  Serious: Yes (Life-Threatening)
  Sender: FRESENIUS KABI
  Company Number: US-FreseniusKabi-FK202515882

PATIENT
  Age: 32 Year
  Sex: Female

DRUGS (1)
  1. ARGATROBAN [Suspect]
     Active Substance: ARGATROBAN
     Indication: Anticoagulant therapy
     Dosage: FOA: INFUSION
     Route: 041

REACTIONS (1)
  - Anaphylactic reaction [Recovering/Resolving]
